FAERS Safety Report 7464085-0 (Version None)
Quarter: 2011Q2

REPORT INFORMATION
  Report Type: 
  Country: None (occurrence: None)
  Receive Date: 20110506
  Receipt Date: 20110502
  Transmission Date: 20111010
  Serious: Yes (Other)
  Sender: FDA-Public Use
  Company Number: US-AMGEN-USASP2011022863

PATIENT
  Age: 76 Year
  Sex: Female

DRUGS (5)
  1. DESONIDE [Concomitant]
     Route: 061
  2. ELAVIL [Concomitant]
  3. PROLIA [Suspect]
     Indication: OSTEOPOROSIS POSTMENOPAUSAL
     Dates: start: 20101223
  4. XANAX [Concomitant]
  5. LIPITOR [Concomitant]

REACTIONS (7)
  - PRURITUS [None]
  - RASH VESICULAR [None]
  - SKIN BURNING SENSATION [None]
  - ROSACEA [None]
  - PAIN OF SKIN [None]
  - RASH ERYTHEMATOUS [None]
  - EYE SWELLING [None]
